APPROVED DRUG PRODUCT: OLMESARTAN MEDOXOMIL AND HYDROCHLOROTHIAZIDE
Active Ingredient: HYDROCHLOROTHIAZIDE; OLMESARTAN MEDOXOMIL
Strength: 12.5MG;40MG
Dosage Form/Route: TABLET;ORAL
Application: A204801 | Product #002 | TE Code: AB
Applicant: MACLEODS PHARMACEUTICALS LTD
Approved: Jun 1, 2023 | RLD: No | RS: No | Type: RX